FAERS Safety Report 10389102 (Version 1)
Quarter: 2014Q3

REPORT INFORMATION
  Report Type: Spontaneous
  Country: JP (occurrence: JP)
  Receive Date: 20140817
  Receipt Date: 20140817
  Transmission Date: 20150326
  Serious: Yes (Other)
  Sender: FDA-Public Use
  Company Number: PHHY2012JP134011

PATIENT
  Age: 56 Year
  Sex: Male

DRUGS (3)
  1. GLIVEC [Suspect]
     Active Substance: IMATINIB MESYLATE
     Indication: CHRONIC MYELOID LEUKAEMIA
     Dosage: 400 MG, DAILY
     Dates: start: 2002
  2. GLIVEC [Suspect]
     Active Substance: IMATINIB MESYLATE
     Dosage: 600 MG,
     Dates: start: 200706, end: 200902
  3. TASIGNA [Suspect]
     Active Substance: NILOTINIB
     Indication: CHRONIC MYELOID LEUKAEMIA
     Dosage: 800 MG, DAILY
     Dates: start: 200902

REACTIONS (8)
  - Fatigue [Recovering/Resolving]
  - Atrial fibrillation [Recovered/Resolved]
  - Liver disorder [Unknown]
  - Leukopenia [Recovering/Resolving]
  - Nausea [Recovering/Resolving]
  - Muscle spasms [Recovered/Resolved]
  - Blood creatine phosphokinase increased [Recovering/Resolving]
  - Face oedema [Recovering/Resolving]

NARRATIVE: CASE EVENT DATE: 200706
